FAERS Safety Report 21499588 (Version 1)
Quarter: 2022Q4

REPORT INFORMATION
  Report Type: Report from Study
  Country: US (occurrence: US)
  Receive Date: 20221024
  Receipt Date: 20221024
  Transmission Date: 20230113
  Serious: Yes (Hospitalization, Other)
  Sender: FDA-Public Use
  Company Number: US-ALLERGAN-2227739US

PATIENT
  Age: 67 Year
  Sex: Female

DRUGS (2)
  1. ATOGEPANT [Suspect]
     Active Substance: ATOGEPANT
     Indication: Product used for unknown indication
     Dosage: 30 UNITS
     Route: 048
  2. TOPAMAX [Concomitant]
     Active Substance: TOPIRAMATE
     Indication: Headache

REACTIONS (9)
  - Meningioma [Unknown]
  - Loss of consciousness [Unknown]
  - Brain neoplasm [Unknown]
  - Intracranial haematoma [Unknown]
  - Fall [Recovered/Resolved]
  - Concussion [Unknown]
  - Post concussion syndrome [Unknown]
  - Ammonia increased [Unknown]
  - Head injury [Unknown]

NARRATIVE: CASE EVENT DATE: 20220730
